FAERS Safety Report 8384902-X (Version None)
Quarter: 2012Q2

REPORT INFORMATION
  Report Type: 
  Country: None (occurrence: None)
  Receive Date: 20120524
  Receipt Date: 20111018
  Transmission Date: 20120825
  Serious: No
  Sender: FDA-Public Use
  Company Number: US-MUTUAL PHARMACEUTICAL COMPANY, INC.-DXCY20110015

PATIENT
  Age: 49 Year
  Sex: Female
  Weight: 46.308 kg

DRUGS (2)
  1. VITAMIN TAB [Concomitant]
     Indication: PRODUCT USED FOR UNKNOWN INDICATION
     Route: 048
  2. DOXYCYCLINE HYCLATE [Suspect]
     Indication: INFECTION PROPHYLAXIS
     Route: 048
     Dates: start: 20110908

REACTIONS (2)
  - ABDOMINAL DISCOMFORT [None]
  - WEIGHT DECREASED [None]
